FAERS Safety Report 13724933 (Version 3)
Quarter: 2022Q2

REPORT INFORMATION
  Report Type: Spontaneous
  Country: US (occurrence: US)
  Receive Date: 20170706
  Receipt Date: 20220421
  Transmission Date: 20220720
  Serious: No
  Sender: FDA-Public Use
  Company Number: US-PFIZER INC-2017285666

PATIENT
  Age: 58 Year
  Sex: Female

DRUGS (11)
  1. DILANTIN [Suspect]
     Active Substance: PHENYTOIN
     Dosage: UNK
  2. ZOLOFT [Suspect]
     Active Substance: SERTRALINE HYDROCHLORIDE
     Dosage: UNK
  3. ACIPHEX [Suspect]
     Active Substance: RABEPRAZOLE SODIUM
     Dosage: UNK
  4. CEFTIN [Suspect]
     Active Substance: CEFUROXIME AXETIL
     Dosage: UNK
  5. CELEXA [Suspect]
     Active Substance: CITALOPRAM HYDROBROMIDE
     Dosage: UNK
  6. COMPAZINE [Suspect]
     Active Substance: PROCHLORPERAZINE MALEATE
     Dosage: UNK
  7. DEPAKOTE [Suspect]
     Active Substance: DIVALPROEX SODIUM
     Dosage: UNK
  8. ELAVIL [Suspect]
     Active Substance: AMITRIPTYLINE HYDROCHLORIDE
     Dosage: UNK
  9. MONISTAT 1 COMBINATION PACK [Suspect]
     Active Substance: MICONAZOLE NITRATE
     Dosage: UNK
  10. SUPRAX [Suspect]
     Active Substance: CEFIXIME
     Dosage: UNK
  11. VALIUM [Suspect]
     Active Substance: DIAZEPAM
     Dosage: UNK

REACTIONS (1)
  - Drug hypersensitivity [Not Recovered/Not Resolved]

NARRATIVE: CASE EVENT DATE: 20160218
